FAERS Safety Report 13711530 (Version 2)
Quarter: 2017Q3

REPORT INFORMATION
  Report Type: Spontaneous
  Country: US (occurrence: US)
  Receive Date: 20170703
  Receipt Date: 20170710
  Transmission Date: 20171127
  Serious: No
  Sender: FDA-Public Use
  Company Number: US-GILEAD-2017-0280821

PATIENT
  Age: 42 Year
  Sex: Male
  Weight: 71.66 kg

DRUGS (9)
  1. VALACYCLOVIR [Concomitant]
     Active Substance: VALACYCLOVIR HYDROCHLORIDE
     Dosage: 500 MG, QD
     Route: 048
     Dates: start: 20170627
  2. FLUTICASONE PROPIONATE. [Concomitant]
     Active Substance: FLUTICASONE PROPIONATE
     Dosage: 50 MCG, QD
     Route: 045
     Dates: start: 20170618
  3. OMEPRAZOLE. [Concomitant]
     Active Substance: OMEPRAZOLE
     Dosage: 20 MG, QD
     Route: 048
     Dates: start: 20170116
  4. LISINOPRIL. [Concomitant]
     Active Substance: LISINOPRIL
     Dosage: 10 MG, QD
     Route: 048
     Dates: start: 20170622
  5. TRIAMCINOLONE ACETONIDE. [Concomitant]
     Active Substance: TRIAMCINOLONE ACETONIDE
     Dosage: APPLY THIN LAYER ON AFFECTED AREA, BID
     Route: 061
     Dates: start: 20170106
  6. TRUVADA [Suspect]
     Active Substance: EMTRICITABINE\TENOFOVIR DISOPROXIL FUMARATE
     Indication: PROPHYLAXIS AGAINST HIV INFECTION
     Dosage: 200MG-300MG, QD
     Route: 048
  7. TRUVADA [Suspect]
     Active Substance: EMTRICITABINE\TENOFOVIR DISOPROXIL FUMARATE
     Dosage: 200MG-300MG, QD
     Route: 048
     Dates: start: 20170703
  8. TRUVADA [Suspect]
     Active Substance: EMTRICITABINE\TENOFOVIR DISOPROXIL FUMARATE
     Dosage: 200MG-300MG, QD
     Route: 048
     Dates: start: 20170626
  9. CLOBETASOL 0.05% [Concomitant]
     Active Substance: CLOBETASOL
     Dosage: APPLY A THIN LAYER TO AFFECTED AREA(S), BID
     Route: 061
     Dates: start: 20170105

REACTIONS (5)
  - Arthralgia [Recovered/Resolved]
  - Penile pain [Recovered/Resolved]
  - Treatment noncompliance [Recovered/Resolved]
  - Burning sensation [Recovered/Resolved]
  - Penile burning sensation [Recovered/Resolved]
